FAERS Safety Report 23521328 (Version 1)
Quarter: 2024Q1

REPORT INFORMATION
  Report Type: Spontaneous
  Country: GB (occurrence: GB)
  Receive Date: 20240214
  Receipt Date: 20240214
  Transmission Date: 20240410
  Serious: Yes (Hospitalization, Other)
  Sender: FDA-Public Use
  Company Number: GB-PHARMVIT-4556-3352-ER24-RN906

PATIENT
  Age: 49 Year
  Sex: Female

DRUGS (1)
  1. PREDNISOLONE [Suspect]
     Active Substance: PREDNISOLONE
     Indication: Gingival erythema
     Route: 065

REACTIONS (2)
  - Immunosuppression [Unknown]
  - Malacoplakia gastrointestinal [Unknown]
